FAERS Safety Report 10025500 (Version 1)
Quarter: 2014Q1

REPORT INFORMATION
  Report Type: Spontaneous
  Country: US (occurrence: None)
  Receive Date: 20140314
  Receipt Date: 20140314
  Transmission Date: 20141002
  Serious: Yes (Hospitalization)
  Sender: FDA-Public Use
  Company Number: 2014AP001789

PATIENT
  Age: 53 Year
  Sex: Male

DRUGS (6)
  1. AMOXICILLIN\CLAVULANATE POTASSIUM [Suspect]
     Indication: TOOTH ABSCESS
  2. WARFARIN [Suspect]
     Indication: ANTICOAGULANT THERAPY
  3. ALBUTEROL/00139501/ [Concomitant]
  4. TRAZODONE [Concomitant]
  5. CHLORDIAZEPOXIDE [Concomitant]
  6. VICODIN [Concomitant]

REACTIONS (7)
  - Haemorrhage [None]
  - Haematuria [None]
  - Contusion [None]
  - Drug interaction [None]
  - International normalised ratio increased [None]
  - Occult blood positive [None]
  - Prothrombin time prolonged [None]
